FAERS Safety Report 9528618 (Version 1)
Quarter: 2013Q2

REPORT INFORMATION
  Report Type: Spontaneous
  Country: US (occurrence: None)
  Receive Date: 20130402
  Receipt Date: 20130402
  Transmission Date: 20140414
  Serious: Yes (Other)
  Sender: FDA-Public Use
  Company Number: RB-47938-2012

PATIENT
  Age: 50 Year
  Sex: Female

DRUGS (1)
  1. SUBOXONE [Suspect]
     Indication: DRUG DEPENDENCE
     Dosage: 12 MG, SUBOXONE FILM SUBLINGUAL
     Route: 060
     Dates: start: 2010, end: 20121209

REACTIONS (2)
  - Gallbladder disorder [None]
  - Wrong technique in drug usage process [None]
